FAERS Safety Report 23473502 (Version 3)
Quarter: 2024Q1

REPORT INFORMATION
  Report Type: Spontaneous
  Country: AT (occurrence: AT)
  Receive Date: 20240203
  Receipt Date: 20240221
  Transmission Date: 20240410
  Serious: Yes (Hospitalization, Other)
  Sender: FDA-Public Use
  Company Number: AT-ABBVIE-5613945

PATIENT
  Age: 68 Year
  Sex: Male
  Weight: 69 kg

DRUGS (4)
  1. RINVOQ [Suspect]
     Active Substance: UPADACITINIB
     Indication: Crohn^s disease
     Route: 048
     Dates: start: 20231116, end: 20240117
  2. PREDNISOLONE [Concomitant]
     Active Substance: PREDNISOLONE
     Indication: Product used for unknown indication
  3. GANCICLOVIR [Concomitant]
     Active Substance: GANCICLOVIR
     Indication: Product used for unknown indication
  4. Piperazillin/Tazobactam [Concomitant]
     Indication: Product used for unknown indication

REACTIONS (9)
  - General physical health deterioration [Unknown]
  - Pneumonia cytomegaloviral [Recovered/Resolved]
  - Respiratory failure [Unknown]
  - Pneumonia [Unknown]
  - Joint stiffness [Unknown]
  - Respiratory tract infection [Unknown]
  - Dyspnoea [Unknown]
  - Upper respiratory tract infection [Unknown]
  - Joint swelling [Unknown]

NARRATIVE: CASE EVENT DATE: 20231101
